FAERS Safety Report 9344280 (Version 1)
Quarter: 2013Q2

REPORT INFORMATION
  Report Type: Spontaneous
  Country: US (occurrence: US)
  Receive Date: 20130612
  Receipt Date: 20130612
  Transmission Date: 20140414
  Serious: No
  Sender: FDA-Public Use
  Company Number: US-PFIZER INC-2013173737

PATIENT
  Age: 67 Year
  Sex: Male
  Weight: 68.03 kg

DRUGS (2)
  1. LIPITOR [Suspect]
     Dosage: 80 MG, DAILY
  2. ASPIRIN [Concomitant]
     Dosage: 81 MG, 1X/DAY

REACTIONS (1)
  - Sensory disturbance [Unknown]
